FAERS Safety Report 4761841-4 (Version None)
Quarter: 2005Q3

REPORT INFORMATION
  Report Type: 
  Country: None (occurrence: None)
  Receive Date: 20050906
  Receipt Date: 20050822
  Transmission Date: 20060218
  Serious: Yes (Other)
  Sender: FDA-Public Use
  Company Number: JP-ROCHE-415308

PATIENT
  Age: 75 Year
  Sex: Male

DRUGS (4)
  1. PEGASYS [Suspect]
     Route: 058
     Dates: start: 20050225, end: 20050710
  2. TEGRETOL [Concomitant]
     Dosage: DOSE FORM: ORAL FORMULATION (NOT OTHERWISE SPECIFIED).
     Route: 048
     Dates: end: 20050710
  3. CELESTAMINE N [Concomitant]
  4. PREDONINE [Concomitant]

REACTIONS (2)
  - EOSINOPHIL COUNT INCREASED [None]
  - RASH [None]
